FAERS Safety Report 5084965-3 (Version None)
Quarter: 2006Q3

REPORT INFORMATION
  Report Type: 
  Country: None (occurrence: None)
  Receive Date: 20060821
  Receipt Date: 20060405
  Transmission Date: 20061208
  Serious: Yes (Hospitalization)
  Sender: FDA-Public Use
  Company Number: US-ABBOTT-06P-163-0329895-00

PATIENT
  Sex: Female
  Weight: 79.45 kg

DRUGS (2)
  1. DILAUDID [Suspect]
     Indication: PAIN
     Route: 042
     Dates: start: 20050201, end: 20050201
  2. CITALOPRAM HYDROBROMIDE [Concomitant]
     Indication: FIBROMYALGIA
     Route: 048

REACTIONS (6)
  - ANXIETY [None]
  - CHOKING [None]
  - DRUG DEPENDENCE [None]
  - SCREAMING [None]
  - SUICIDAL IDEATION [None]
  - TREMOR [None]
